FAERS Safety Report 7139631 (Version 4)
Quarter: 2013Q1

REPORT INFORMATION
  Report Type: Spontaneous
  Country: CA (occurrence: CA)
  Receive Date: 20091005
  Receipt Date: 20130220
  Transmission Date: 20140127
  Serious: Yes (Other)
  Sender: FDA-Public Use
  Company Number: CA-JNJFOC-20090907527

PATIENT
  Sex: Female
  Weight: 55 kg

DRUGS (6)
  1. REMICADE [Suspect]
     Indication: CROHN^S DISEASE
     Dosage: 600 MG
     Route: 042
     Dates: start: 200905
  2. REMICADE [Suspect]
     Indication: CROHN^S DISEASE
     Dosage: 300MG
     Route: 042
     Dates: start: 200810
  3. REMICADE [Suspect]
     Indication: CROHN^S DISEASE
     Dosage: 600 MG
     Route: 042
     Dates: start: 2009, end: 20090813
  4. IMURAN [Concomitant]
     Route: 065
     Dates: start: 2002
  5. ORAL CONTRACEPTIVE [Concomitant]
     Route: 048
  6. CELEBREX [Concomitant]
     Dosage: ONCE OR TWICE DAILY
     Route: 048

REACTIONS (1)
  - Lupus-like syndrome [Unknown]
